FAERS Safety Report 7669677-1 (Version None)
Quarter: 2011Q3

REPORT INFORMATION
  Report Type: 
  Country: None (occurrence: None)
  Receive Date: 20110808
  Receipt Date: 20110802
  Transmission Date: 20111222
  Serious: Yes (Hospitalization, Other)
  Sender: FDA-Public Use
  Company Number: CA-ABBOTT-11P-028-0843115-00

PATIENT
  Sex: Female
  Weight: 50.394 kg

DRUGS (15)
  1. PREDNISONE [Concomitant]
     Indication: ANTIINFLAMMATORY THERAPY
  2. LANSOPRAZOLE [Concomitant]
     Indication: GASTRIC DISORDER
     Route: 048
  3. TIMOLOL MALEATE [Concomitant]
     Indication: GLAUCOMA
     Route: 061
  4. SPIRIVA [Concomitant]
     Indication: BRONCHOSPASM
     Route: 055
  5. OXYCET [Concomitant]
     Indication: ARTHRITIS
     Route: 048
  6. FOLIC ACID [Concomitant]
     Indication: CROHN'S DISEASE
     Route: 048
     Dates: start: 20100101
  7. HUMIRA [Suspect]
     Indication: CROHN'S DISEASE
     Route: 058
     Dates: start: 20080714
  8. PREDNISONE [Concomitant]
     Indication: GASTROINTESTINAL DISORDER
  9. OXYCODONE HCL [Concomitant]
     Indication: ARTHRITIS
     Route: 048
  10. VENLAFLAZINE [Concomitant]
     Indication: DEPRESSION
     Dosage: 75 MG AND 100 MG QD
     Route: 048
  11. HUMIRA [Suspect]
     Dosage: LOADING DOSE
     Route: 058
     Dates: start: 20110715, end: 20110715
  12. HUMIRA [Suspect]
     Dosage: LOADING DOSE
     Route: 058
     Dates: start: 20110729, end: 20110729
  13. ALBUTEROL [Concomitant]
     Indication: BRONCHOSPASM
     Route: 055
  14. CRESTOR [Concomitant]
     Indication: BLOOD CHOLESTEROL INCREASED
     Route: 048
  15. FOLIC ACID [Concomitant]
     Indication: ARTHRITIS

REACTIONS (13)
  - MUCOUS STOOLS [None]
  - CROHN'S DISEASE [None]
  - MALAISE [None]
  - HAEMATOCHEZIA [None]
  - ABDOMINAL TENDERNESS [None]
  - ARTHRITIS [None]
  - INTESTINAL OBSTRUCTION [None]
  - CONSTIPATION [None]
  - ABDOMINAL DISTENSION [None]
  - ABDOMINAL PAIN [None]
  - INTESTINAL PERFORATION [None]
  - VOMITING [None]
  - TYPE 2 DIABETES MELLITUS [None]
